FAERS Safety Report 23490861 (Version 1)
Quarter: 2024Q1

REPORT INFORMATION
  Report Type: Spontaneous
  Country: US (occurrence: None)
  Receive Date: 20240206
  Receipt Date: 20240206
  Transmission Date: 20240410
  Serious: Yes (Hospitalization)
  Sender: FDA-Public Use
  Company Number: US-ROCHE-3322863

PATIENT
  Age: 11 Year
  Sex: Male

DRUGS (9)
  1. NUTROPIN AQ [Suspect]
     Active Substance: SOMATROPIN
     Indication: Renal transplant
     Dosage: 10 MG/ 2ML
     Route: 058
     Dates: start: 20220726
  2. NUTROPIN AQ [Suspect]
     Active Substance: SOMATROPIN
  3. FAMOTIDINE [Concomitant]
     Active Substance: FAMOTIDINE
  4. IRON [Concomitant]
     Active Substance: IRON
  5. NITROFURANTOIN [Concomitant]
     Active Substance: NITROFURANTOIN
  6. PREDNISONE [Concomitant]
     Active Substance: PREDNISONE
  7. TACROLIMUS [Concomitant]
     Active Substance: TACROLIMUS
  8. VITAMIN D [Concomitant]
     Active Substance: VITAMIN D NOS
     Dosage: 1000UNIT
  9. MYCOPHENOLIC ACID [Concomitant]
     Active Substance: MYCOPHENOLIC ACID

REACTIONS (2)
  - Off label use [Unknown]
  - No adverse event [Unknown]
